FAERS Safety Report 13905617 (Version 1)
Quarter: 2017Q3

REPORT INFORMATION
  Report Type: Spontaneous
  Country: US (occurrence: None)
  Receive Date: 20170821
  Receipt Date: 20170821
  Transmission Date: 20171127
  Serious: Yes (Disabling)
  Sender: FDA-Public Use
  Company Number: None

PATIENT
  Age: 68 Year
  Sex: Female
  Weight: 117.94 kg

DRUGS (9)
  1. ELIQUIS [Concomitant]
     Active Substance: APIXABAN
  2. ISORDIL [Concomitant]
     Active Substance: ISOSORBIDE DINITRATE
  3. SYNTHROID [Concomitant]
     Active Substance: LEVOTHYROXINE SODIUM
  4. METOPROLOL. [Concomitant]
     Active Substance: METOPROLOL
  5. CLOPIDOGREL [Concomitant]
     Active Substance: CLOPIDOGREL BISULFATE
  6. PRAVASTATIN. [Concomitant]
     Active Substance: PRAVASTATIN
  7. ALENDRONATE 70 MGM TAB FOR FOSAMAX 70MGM TAB [Suspect]
     Active Substance: ALENDRONATE SODIUM
     Indication: OSTEOPENIA
     Dosage: ?          QUANTITY:1 ;?
     Route: 048
     Dates: start: 20170426, end: 20170712
  8. ALENDRONATE 70 MGM TAB FOR FOSAMAX 70MGM TAB [Suspect]
     Active Substance: ALENDRONATE SODIUM
     Indication: OSTEOPOROSIS
     Dosage: ?          QUANTITY:1 ;?
     Route: 048
     Dates: start: 20170426, end: 20170712
  9. MYRBETRIQ [Concomitant]
     Active Substance: MIRABEGRON

REACTIONS (3)
  - Arthralgia [None]
  - Dyspnoea [None]
  - Muscle spasms [None]

NARRATIVE: CASE EVENT DATE: 201705
